FAERS Safety Report 7512139-2 (Version None)
Quarter: 2011Q2

REPORT INFORMATION
  Report Type: 
  Country: None (occurrence: None)
  Receive Date: 20110531
  Receipt Date: 20110530
  Transmission Date: 20111010
  Serious: Yes (Other)
  Sender: FDA-Public Use
  Company Number: DE-SANOFI-AVENTIS-2010SA021082

PATIENT
  Age: 68 Year
  Sex: Male
  Weight: 91 kg

DRUGS (1)
  1. MULTAQ [Suspect]
     Route: 048
     Dates: start: 20100407

REACTIONS (11)
  - FEAR OF DEATH [None]
  - JOINT INJURY [None]
  - DIARRHOEA [None]
  - AGEUSIA [None]
  - TACHYARRHYTHMIA [None]
  - PULSE WAVEFORM ABNORMAL [None]
  - NAUSEA [None]
  - DIZZINESS [None]
  - RENAL PAIN [None]
  - CARDIAC ARREST [None]
  - ANORECTAL DISCOMFORT [None]
